FAERS Safety Report 7203680-0 (Version None)
Quarter: 2010Q4

REPORT INFORMATION
  Report Type: 
  Country: None (occurrence: None)
  Receive Date: 20101230
  Receipt Date: 20101217
  Transmission Date: 20110411
  Serious: Yes (Other)
  Sender: FDA-Public Use
  Company Number: PHFR2010GB05412

PATIENT
  Sex: Male

DRUGS (3)
  1. CLOZARIL [Suspect]
     Indication: SCHIZOPHRENIA
     Dosage: UNK
     Route: 048
     Dates: start: 20020626
  2. CLOZARIL [Suspect]
     Dosage: 650 MG/DAY
     Route: 048
  3. FLUOXETINE [Concomitant]
     Indication: PANIC DISORDER
     Dosage: 40 MG, UNK
     Route: 048

REACTIONS (3)
  - COLLAPSE OF LUNG [None]
  - NEUTROPHIL COUNT INCREASED [None]
  - WHITE BLOOD CELL COUNT INCREASED [None]
